FAERS Safety Report 9721534 (Version 1)
Quarter: 2013Q4

REPORT INFORMATION
  Report Type: Other
  Country: TW (occurrence: TW)
  Receive Date: 20131130
  Receipt Date: 20131130
  Transmission Date: 20140711
  Serious: Yes (Other)
  Sender: FDA-Public Use
  Company Number: TW-BRISTOL-MYERS SQUIBB COMPANY-19856798

PATIENT
  Age: 82 Year
  Sex: Male

DRUGS (2)
  1. TRIAMCINOLONE ACE INJ 40 MG [Suspect]
     Indication: MACULAR DEGENERATION
  2. BEVACIZUMAB [Suspect]
     Indication: MACULAR DEGENERATION
     Dosage: 1DF=2.5MG/0.1ML?INTRAVITREAL

REACTIONS (1)
  - Choroidal infarction [Recovered/Resolved]
